FAERS Safety Report 9473342 (Version 2)
Quarter: 2013Q3

REPORT INFORMATION
  Report Type: Spontaneous
  Country: US (occurrence: US)
  Receive Date: 20130823
  Receipt Date: 20130823
  Transmission Date: 20140515
  Serious: No
  Sender: FDA-Public Use
  Company Number: US-GALDERMA-US-GDP-12414213

PATIENT
  Age: 44 Year
  Sex: Male
  Weight: 73 kg

DRUGS (3)
  1. METROGEL (METRONIDAZOLE) GEL, 1% [Suspect]
     Indication: ROSACEA
     Dosage: 1%
     Route: 061
     Dates: start: 201206
  2. METROGEL (METRONIDAZOLE) GEL, 1% [Suspect]
     Route: 061
     Dates: start: 201012, end: 201206
  3. LEXAPRO [Concomitant]
     Indication: ANXIETY
     Route: 048
     Dates: start: 201106

REACTIONS (2)
  - Drug effect decreased [Not Recovered/Not Resolved]
  - Off label use [Recovered/Resolved]
